FAERS Safety Report 7835608-4 (Version None)
Quarter: 2011Q4

REPORT INFORMATION
  Report Type: 
  Country: None (occurrence: None)
  Receive Date: 20111024
  Receipt Date: 20111017
  Transmission Date: 20120403
  Serious: Yes (Other)
  Sender: FDA-Public Use
  Company Number: PHHY2011JP88343

PATIENT
  Age: 48 Year
  Sex: Female

DRUGS (10)
  1. ZOLEDRONIC ACID [Suspect]
     Indication: METASTASES TO BONE
     Route: 041
     Dates: start: 20061001, end: 20071201
  2. METASTRON [Concomitant]
     Dates: start: 20100201
  3. PAMIDRONATE DISODIUM [Suspect]
     Indication: METASTASES TO BONE
     Route: 041
     Dates: start: 20050701
  4. EXEMESTANE [Concomitant]
  5. RADIATION THERAPY [Concomitant]
  6. TOREMIFENE [Concomitant]
  7. OXYCODONE HCL [Concomitant]
  8. PAMIDRONATE DISODIUM [Suspect]
     Indication: BONE PAIN
  9. ZOLEDRONIC ACID [Suspect]
     Route: 041
     Dates: start: 20100801
  10. MORPHINE [Concomitant]
     Indication: METASTATIC PAIN
     Dates: start: 20070801

REACTIONS (5)
  - PUBIS FRACTURE [None]
  - CLAVICLE FRACTURE [None]
  - HYPERCALCAEMIA [None]
  - GINGIVITIS [None]
  - PATHOLOGICAL FRACTURE [None]
